FAERS Safety Report 5119480-1 (Version None)
Quarter: 2006Q3

REPORT INFORMATION
  Report Type: 
  Country: None (occurrence: None)
  Receive Date: 20060928
  Receipt Date: 20060914
  Transmission Date: 20061208
  Serious: Yes (Other)
  Sender: FDA-Public Use
  Company Number: 2005BI002772

PATIENT
  Age: 59 Year
  Sex: Male

DRUGS (3)
  1. AVONEX [Suspect]
     Indication: MULTIPLE SCLEROSIS
     Dosage: 30 UG QW IM
     Route: 030
     Dates: start: 19980101, end: 19980101
  2. 4 AMINOPYRIDINE [Concomitant]
  3. BACLOFEN [Concomitant]

REACTIONS (6)
  - ALANINE AMINOTRANSFERASE INCREASED [None]
  - ASPARTATE AMINOTRANSFERASE INCREASED [None]
  - BODY TEMPERATURE INCREASED [None]
  - HEART RATE INCREASED [None]
  - HYPERSENSITIVITY [None]
  - STEVENS-JOHNSON SYNDROME [None]
